FAERS Safety Report 15499897 (Version 1)
Quarter: 2018Q4

REPORT INFORMATION
  Report Type: Spontaneous
  Country: US (occurrence: US)
  Receive Date: 20181008
  Receipt Date: 20181008
  Transmission Date: 20190205
  Serious: Yes (Hospitalization)
  Sender: FDA-Public Use
  Company Number: None

PATIENT
  Sex: Female

DRUGS (18)
  1. IRON [Concomitant]
     Active Substance: IRON
  2. CALCIUM D [Concomitant]
     Active Substance: CALCIUM\VITAMIN D
  3. OMEPRAZOE [Concomitant]
  4. FOSAMAX [Concomitant]
     Active Substance: ALENDRONATE SODIUM
  5. VITAMIN D2 [Concomitant]
     Active Substance: ERGOCALCIFEROL
  6. METHORTREXATE [Concomitant]
  7. MELOXICAM. [Concomitant]
     Active Substance: MELOXICAM
  8. PREDNISONE. [Concomitant]
     Active Substance: PREDNISONE
  9. ORENCIA [Suspect]
     Active Substance: ABATACEPT
     Indication: RHEUMATOID ARTHRITIS
     Dosage: ?          OTHER FREQUENCY:EVERY WEEK;?
     Route: 058
     Dates: start: 20180405
  10. FOLIC ACID. [Concomitant]
     Active Substance: FOLIC ACID
  11. SUBOXONE [Concomitant]
     Active Substance: BUPRENORPHINE HYDROCHLORIDE\NALOXONE HYDROCHLORIDE
  12. LEVOTHYROXIN [Concomitant]
     Active Substance: LEVOTHYROXINE
  13. ALPRAZOLAM. [Concomitant]
     Active Substance: ALPRAZOLAM
  14. TRAZODONE [Concomitant]
     Active Substance: TRAZODONE HYDROCHLORIDE
  15. ZINC SULFATE [Concomitant]
     Active Substance: ZINC SULFATE\ZINC SULFATE ANHYDROUS
  16. ZOLOFT [Concomitant]
     Active Substance: SERTRALINE HYDROCHLORIDE
  17. SERTRALINE [Concomitant]
     Active Substance: SERTRALINE HYDROCHLORIDE
  18. ACID REDUCER [Concomitant]

REACTIONS (1)
  - Surgery [None]
